FAERS Safety Report 10188321 (Version 2)
Quarter: 2014Q2

REPORT INFORMATION
  Report Type: Spontaneous
  Country: SE (occurrence: SE)
  Receive Date: 20140522
  Receipt Date: 20140619
  Transmission Date: 20141212
  Serious: Yes (Life-Threatening, Hospitalization)
  Sender: FDA-Public Use
  Company Number: SE-JNJFOC-20140512761

PATIENT
  Age: 23 Year
  Sex: Female
  Weight: 68 kg

DRUGS (1)
  1. SIMPONI [Suspect]
     Indication: COLITIS ULCERATIVE
     Route: 058
     Dates: start: 20140404, end: 20140414

REACTIONS (3)
  - Hypersensitivity [Recovered/Resolved with Sequelae]
  - Oedema [Recovered/Resolved with Sequelae]
  - Respiratory distress [Recovered/Resolved with Sequelae]
